FAERS Safety Report 10349701 (Version 1)
Quarter: 2014Q3

REPORT INFORMATION
  Report Type: Spontaneous
  Country: GB (occurrence: None)
  Receive Date: 20140728
  Receipt Date: 20140728
  Transmission Date: 20150326
  Serious: Yes (Disabling)
  Sender: FDA-Public Use
  Company Number: AUR-APL-2014-07931

PATIENT
  Age: 84 Year
  Sex: Male
  Weight: 70 kg

DRUGS (19)
  1. BUDESONIDE (BUDESONIDE) [Concomitant]
     Active Substance: BUDESONIDE
  2. ISOSORBIDE MONONITRATE (ISOSORBIDE MONONITRATE) [Concomitant]
  3. CETIRIZINE (CETIRIZINE) [Concomitant]
     Active Substance: CETIRIZINE HYDROCHLORIDE
  4. LACTULOSE (LACTULOSE) [Concomitant]
     Active Substance: LACTULOSE
  5. GLYCERYL TRINITRATE (GLYCERYL TRINITRATE) [Concomitant]
  6. LANSOPRAZOLE (LANSOPRAZOLE) [Concomitant]
     Active Substance: LANSOPRAZOLE
  7. ADCAL /00056901/ (CARBAZOCHROME) [Concomitant]
  8. DILTIAZEM (DILTIAZEM)? [Concomitant]
  9. LISINOPRIL (LISINOPRIL) [Concomitant]
     Active Substance: LISINOPRIL
  10. CLOPIDOGREL [Suspect]
     Active Substance: CLOPIDOGREL BISULFATE
     Indication: PRODUCT USED FOR UNKNOWN INDICATION
  11. ALENDRONIC ACID (ALENDRONIC ACID) [Concomitant]
     Active Substance: ALENDRONIC ACID
  12. HYDROXOCOBALAMIN (HYDROXOCOBALAMIN) [Concomitant]
  13. HYPROMELLOSE (HYPROMELLOSE) [Concomitant]
  14. WARFARIN SODIUM (WARFARIN SODIUM) [Concomitant]
     Active Substance: WARFARIN SODIUM
  15. FOLIC ACID (FOLIC ACID) [Concomitant]
     Active Substance: FOLIC ACID
  16. POVIDONE-IODINE (POVIDONE-IODINE) [Concomitant]
  17. SALMETEROL (SALMETEROL) [Concomitant]
  18. SIMVASTATIN (SIMVASTATIN) [Concomitant]
     Active Substance: SIMVASTATIN
  19. VENTOLIN /00139501/ (SALBUTAMOL) [Concomitant]

REACTIONS (4)
  - Blood pressure decreased [None]
  - Confusional state [None]
  - Pruritus [None]
  - Feeling abnormal [None]

NARRATIVE: CASE EVENT DATE: 20140618
